FAERS Safety Report 6490581-9 (Version None)
Quarter: 2009Q4

REPORT INFORMATION
  Report Type: 
  Country: None (occurrence: None)
  Receive Date: 20091208
  Receipt Date: 20091124
  Transmission Date: 20100525
  Serious: Yes (Hospitalization)
  Sender: FDA-Public Use
  Company Number: 2009-196588-NL

PATIENT
  Age: 19 Year
  Sex: Female
  Weight: 77.1115 kg

DRUGS (2)
  1. NUVARING [Suspect]
     Indication: CONTRACEPTION
     Dosage: VAG
     Route: 067
     Dates: start: 20040301, end: 20060113
  2. AUGMENTIN [Concomitant]

REACTIONS (7)
  - ASTHENIA [None]
  - CYST [None]
  - GOITRE [None]
  - HYPOTHYROIDISM [None]
  - LOCAL SWELLING [None]
  - PNEUMONIA [None]
  - PULMONARY EMBOLISM [None]
